FAERS Safety Report 20590473 (Version 15)
Quarter: 2022Q2

REPORT INFORMATION
  Report Type: Spontaneous
  Country: IT (occurrence: IT)
  Receive Date: 20220314
  Receipt Date: 20220602
  Transmission Date: 20220721
  Serious: Yes (Hospitalization, Other)
  Sender: FDA-Public Use
  Company Number: IT-NOVARTISPH-NVSC2022IT050965

PATIENT
  Age: 58 Year
  Sex: Male
  Weight: 55 kg

DRUGS (28)
  1. FENTANYL CITRATE [Suspect]
     Active Substance: FENTANYL CITRATE
     Indication: Cancer pain
     Dosage: 1 DOSAGE FORM, Q72H
     Route: 048
     Dates: start: 2021
  2. FENTANYL CITRATE [Suspect]
     Active Substance: FENTANYL CITRATE
     Indication: Analgesic therapy
  3. OXYCODONE HYDROCHLORIDE [Suspect]
     Active Substance: OXYCODONE HYDROCHLORIDE
     Indication: Procedural pain
     Dosage: 20 MG, QD, 10 MG, BID (LONG ACTING 10MGX2)
     Route: 048
     Dates: start: 20210616, end: 20210629
  4. ASPIRIN [Suspect]
     Active Substance: ASPIRIN
     Indication: Product used for unknown indication
     Dosage: 100 MILLIGRAM, QD (100 MG, QD)
     Route: 065
  5. OLMESARTAN MEDOXOMIL [Suspect]
     Active Substance: OLMESARTAN MEDOXOMIL
     Indication: Product used for unknown indication
     Dosage: 20 MILLIGRAM, QD (20 MG, QD)
     Route: 065
  6. LANSOPRAZOLE [Suspect]
     Active Substance: LANSOPRAZOLE
     Indication: Product used for unknown indication
     Dosage: 30 MILLIGRAM, QD (30 MG, QD)
     Route: 065
  7. PREGABALIN [Suspect]
     Active Substance: PREGABALIN
     Indication: Neuralgia
     Dosage: 25 MILLIGRAM, QD (25 MG, QD)
     Route: 048
  8. PREGABALIN [Suspect]
     Active Substance: PREGABALIN
     Indication: Analgesic therapy
  9. MORPHINE SULFATE [Suspect]
     Active Substance: MORPHINE SULFATE
     Indication: Analgesic therapy
     Dosage: 35 MG, BID
     Route: 048
     Dates: start: 2021
  10. MORPHINE SULFATE [Suspect]
     Active Substance: MORPHINE SULFATE
     Indication: Cancer pain
     Dosage: 70 MG, QD
     Route: 065
  11. MORPHINE SULFATE [Suspect]
     Active Substance: MORPHINE SULFATE
     Dosage: UNK UNK, BID (1 BID ADMINISTRATION)
     Route: 065
  12. PREGABALIN [Suspect]
     Active Substance: PREGABALIN
     Indication: Analgesic therapy
     Dosage: 1 DOSAGE FORM, QD, IN THE EVENING
     Route: 065
  13. PREGABALIN [Suspect]
     Active Substance: PREGABALIN
     Dosage: 25 MG, QD
     Route: 065
  14. CODEINE PHOSPHATE [Suspect]
     Active Substance: CODEINE PHOSPHATE
     Indication: Back pain
     Dosage: 3 DOSAGE FORM, QD (30/500 MILLIGRAM, Q8HR)
     Route: 065
  15. CODEINE PHOSPHATE [Suspect]
     Active Substance: CODEINE PHOSPHATE
     Indication: Abdominal pain
     Dosage: 1 DOSAGE FORM, Q8H (TID (30/500 MILLIGRAM,  THREE TIMES A DAY EVERY 8 HOURS)
     Route: 065
  16. OXYCODONE [Suspect]
     Active Substance: OXYCODONE
     Indication: Procedural pain
     Dosage: 3 MG, TID
     Route: 042
     Dates: start: 20210616, end: 202106
  17. KETOROLAC [Suspect]
     Active Substance: KETOROLAC TROMETHAMINE
     Indication: Product used for unknown indication
     Dosage: 25 DRP, Q12H (25GTT AS NECESSARY (ABOUT TWICE A DAY)
     Route: 065
  18. KETOROLAC [Suspect]
     Active Substance: KETOROLAC TROMETHAMINE
     Dosage: 25GTT AS NECESSARY (ABOUT TWICE A DAY)
     Route: 065
  19. ENOXAPARIN SODIUM [Concomitant]
     Active Substance: ENOXAPARIN SODIUM
     Indication: Anticoagulant therapy
     Dosage: 1 SPOON THREE TIME DAILY
     Route: 048
     Dates: start: 2021
  20. ENOXAPARIN SODIUM [Concomitant]
     Active Substance: ENOXAPARIN SODIUM
     Indication: Thrombosis prophylaxis
     Dosage: 4000 IU, QD
     Route: 058
  21. METOCLOPRAMIDE [Concomitant]
     Active Substance: METOCLOPRAMIDE
     Indication: Analgesic therapy
     Dosage: 1 VIAL AT LUNCH AND 1 AT DINNER
     Route: 048
     Dates: start: 2021
  22. METOCLOPRAMIDE [Concomitant]
     Active Substance: METOCLOPRAMIDE
     Dosage: 10 MG, BID
     Route: 048
  23. DEXAMETHASONE [Concomitant]
     Active Substance: DEXAMETHASONE
     Indication: Product used for unknown indication
     Dosage: 8 MG, QD, (1 FL PER DAY)
     Route: 065
     Dates: start: 2021
  24. DEXAMETHASONE [Concomitant]
     Active Substance: DEXAMETHASONE
     Dosage: 4 MG, QD
     Route: 048
     Dates: start: 2021
  25. BISOPROLOL [Concomitant]
     Active Substance: BISOPROLOL
     Indication: Product used for unknown indication
     Dosage: 1.25 MG, QD
     Route: 048
     Dates: start: 2021
  26. COLCHICINE [Concomitant]
     Active Substance: COLCHICINE
     Indication: Product used for unknown indication
     Dosage: UNK
     Route: 065
  27. CORTISONE [Concomitant]
     Active Substance: CORTISONE
     Indication: Product used for unknown indication
     Dosage: UNK
     Route: 065
  28. VASELINE PURE [Concomitant]
     Active Substance: PETROLATUM
     Indication: Constipation
     Dosage: 1 DOSAGE FORM, TID (1 SPOON 3 TIMES DAILY (OIL))
     Route: 048
     Dates: start: 2021

REACTIONS (12)
  - Strabismus [Unknown]
  - Heart sounds abnormal [Unknown]
  - Weight decreased [Unknown]
  - Gastrointestinal motility disorder [Unknown]
  - Breath sounds abnormal [Unknown]
  - Back pain [Unknown]
  - Dehydration [Unknown]
  - Muscle atrophy [Unknown]
  - Abdominal pain [Unknown]
  - Nausea [Recovering/Resolving]
  - Constipation [Recovered/Resolved]
  - Dry mouth [Recovering/Resolving]

NARRATIVE: CASE EVENT DATE: 20210601
